FAERS Safety Report 25421468 (Version 2)
Quarter: 2025Q2

REPORT INFORMATION
  Report Type: Spontaneous
  Country: GB (occurrence: GB)
  Receive Date: 20250611
  Receipt Date: 20250626
  Transmission Date: 20250716
  Serious: Yes (Other)
  Sender: AUROBINDO
  Company Number: GB-MHRA-MED-202505271431510940-THDYQ

PATIENT
  Age: 69 Year
  Sex: Female
  Weight: 85 kg

DRUGS (8)
  1. ONDANSETRON [Suspect]
     Active Substance: ONDANSETRON
     Indication: Adverse drug reaction
     Route: 065
     Dates: start: 20250523
  2. ONDANSETRON [Suspect]
     Active Substance: ONDANSETRON
     Indication: Procedural nausea
  3. CYCLIZINE [Suspect]
     Active Substance: CYCLIZINE
     Indication: Adverse drug reaction
     Route: 065
     Dates: start: 20250523, end: 20250523
  4. CYCLIZINE [Suspect]
     Active Substance: CYCLIZINE
     Indication: Procedural nausea
  5. AMITRIPTYLINE [Concomitant]
     Active Substance: AMITRIPTYLINE
     Indication: Product used for unknown indication
     Route: 065
  6. TRAMADOL [Concomitant]
     Active Substance: TRAMADOL
     Indication: Product used for unknown indication
     Route: 065
  7. FLUCLOXACILLIN [Concomitant]
     Active Substance: FLUCLOXACILLIN
     Indication: Product used for unknown indication
     Route: 065
  8. GENTAMICIN [Concomitant]
     Active Substance: GENTAMICIN
     Indication: Product used for unknown indication
     Route: 065

REACTIONS (2)
  - Extrapyramidal disorder [Recovered/Resolved]
  - Tachycardia [Recovered/Resolved]

NARRATIVE: CASE EVENT DATE: 20250523
